FAERS Safety Report 24556943 (Version 1)
Quarter: 2024Q4

REPORT INFORMATION
  Report Type: Spontaneous
  Country: CA (occurrence: CA)
  Receive Date: 20241028
  Receipt Date: 20241028
  Transmission Date: 20250115
  Serious: Yes (Hospitalization)
  Sender: Vantive US Healthcare
  Company Number: CA-VANTIVE-2024VAN020627

PATIENT
  Sex: Male

DRUGS (3)
  1. SODIUM BICARBONATE [Suspect]
     Active Substance: SODIUM BICARBONATE
     Dosage: 3 TIMES A WEEK OVER 10 HOURS
     Route: 065
  2. ACID CONCENTRATE D [Suspect]
     Active Substance: ACETIC ACID\CALCIUM CHLORIDE\DEXTROSE\MAGNESIUM CHLORIDE\POTASSIUM CHLORIDE\SODIUM CHLORIDE
     Dosage: 3 TIMES A WEEK OVER 10 HOURS
     Route: 065
  3. SODIUM CHLORIDE [Suspect]
     Active Substance: SODIUM CHLORIDE
     Dosage: 3 TIMES A WEEK OVER 10 HOURS
     Route: 065

REACTIONS (1)
  - Haematological infection [Unknown]
